FAERS Safety Report 5639106-8 (Version None)
Quarter: 2008Q1

REPORT INFORMATION
  Report Type: 
  Country: None (occurrence: None)
  Receive Date: 20080226
  Receipt Date: 20080213
  Transmission Date: 20080703
  Serious: Yes (Death, Other)
  Sender: FDA-Public Use
  Company Number: US-ELI_LILLY_AND_COMPANY-US200802003651

PATIENT
  Age: 16 Year
  Sex: Male

DRUGS (4)
  1. FLUOXETINE HYDROCHLORIDE [Suspect]
     Route: 048
  2. COCAINE [Concomitant]
  3. METHYLPHENIDATE HCL [Concomitant]
  4. TETRACYCLINE [Concomitant]

REACTIONS (1)
  - INTENTIONAL DRUG MISUSE [None]
